FAERS Safety Report 7660071-6 (Version None)
Quarter: 2011Q3

REPORT INFORMATION
  Report Type: 
  Country: None (occurrence: None)
  Receive Date: 20110805
  Receipt Date: 20110804
  Transmission Date: 20111222
  Serious: No
  Sender: FDA-Public Use
  Company Number: US-PFIZER INC-2007007315

PATIENT
  Sex: Female
  Weight: 66 kg

DRUGS (33)
  1. CHANTIX [Suspect]
     Dosage: UNK
     Dates: start: 20080101, end: 20080101
  2. ALBUTEROL SULFATE AUTOHALER [Concomitant]
     Dosage: 4 MG, TABLET 2 OR 3 TIMES A DAY
     Route: 048
  3. NICOPATCH [Concomitant]
  4. REGLAN [Concomitant]
     Dosage: 10 MG, 3X/DAY
  5. ZOCOR [Concomitant]
     Dosage: 20 MG, DAILY
  6. CELEBREX [Concomitant]
     Dosage: UNK
  7. FIORINAL [Concomitant]
     Indication: HEADACHE
     Dosage: UNK, AS NEEDED
  8. OXYCONTIN [Concomitant]
     Indication: INTERVERTEBRAL DISC DEGENERATION
     Dosage: 10 MG,EVERY 5 HOURS AS NEEDED
  9. CHANTIX [Suspect]
     Dosage: UNK
     Dates: start: 20100101
  10. PARAFON FORTE [Concomitant]
     Indication: PAIN
     Dosage: 500 MG, EVERY 5 HOURS AS NEEDED
  11. PREDNISONE [Concomitant]
     Indication: LUNG DISORDER
     Dosage: 50 MG, UNK
  12. PARAFON FORTE [Concomitant]
     Indication: MUSCLE RELAXANT THERAPY
     Dosage: UNK
  13. LASIX [Concomitant]
     Dosage: UNK
  14. CHANTIX [Suspect]
     Dosage: 0.5 MG, 1X/DAY
     Route: 048
     Dates: start: 20070101
  15. CHANTIX [Suspect]
     Dosage: UNK
     Route: 048
     Dates: start: 20071201, end: 20080301
  16. FOSAMAX [Concomitant]
     Dosage: 70 MG, WEEKLY
  17. CHANTIX [Suspect]
     Dosage: UNK
     Dates: start: 20090101, end: 20090101
  18. PAXIL [Concomitant]
     Dosage: UNK
  19. PREVACID [Concomitant]
     Dosage: 30 MG, 1X/DAY
  20. TENUATE DOSPAN [Concomitant]
     Indication: WEIGHT INCREASED
     Dosage: 75 MG, 1X/DAY
  21. TENUATE DOSPAN [Concomitant]
     Dosage: UNK
  22. CELEBREX [Concomitant]
     Dosage: 200 MG, 2X/DAY
  23. DUONEB [Concomitant]
     Indication: ASTHMA
     Dosage: UNK
  24. CHANTIX [Suspect]
     Indication: SMOKING CESSATION THERAPY
     Dosage: UNK
     Dates: start: 20061101, end: 20070101
  25. THEODUR ^ELAN^ [Concomitant]
     Dosage: UNK
  26. ADVAIR DISKUS 100/50 [Concomitant]
     Indication: CHRONIC OBSTRUCTIVE PULMONARY DISEASE
     Dosage: 500/50 MG, 2X/DAY
  27. ADVAIR DISKUS 100/50 [Concomitant]
     Dosage: UNK
  28. ATROVENT [Concomitant]
     Indication: CHRONIC OBSTRUCTIVE PULMONARY DISEASE
     Dosage: UNK
  29. IMITREX [Concomitant]
     Indication: MIGRAINE
     Dosage: 25 MG, AS NEEDED
  30. CHANTIX [Suspect]
     Dosage: UNK
     Dates: start: 20081201, end: 20090801
  31. CHANTIX [Suspect]
     Dosage: UNK
     Dates: start: 20110501
  32. TRAZODONE HCL [Concomitant]
     Dosage: 200 MG, 1X/DAY
  33. PREDNISONE [Concomitant]
     Indication: CHRONIC OBSTRUCTIVE PULMONARY DISEASE
     Dosage: UNK

REACTIONS (4)
  - SOMNOLENCE [None]
  - CRYING [None]
  - LETHARGY [None]
  - FATIGUE [None]
